FAERS Safety Report 9845133 (Version 1)
Quarter: 2014Q1

REPORT INFORMATION
  Report Type: Spontaneous
  Country: US (occurrence: None)
  Receive Date: 20140122
  Receipt Date: 20140122
  Transmission Date: 20141002
  Serious: Yes (Other)
  Sender: FDA-Public Use
  Company Number: 2014US002966

PATIENT
  Age: 26 Year
  Sex: Female

DRUGS (2)
  1. ICLUSIG [Suspect]
     Indication: CHRONIC MYELOID LEUKAEMIA
     Route: 048
     Dates: start: 20130610, end: 20130704
  2. BOSULIF (BOSUTINIB) [Concomitant]

REACTIONS (4)
  - Cardiomegaly [None]
  - Pulmonary hypertension [None]
  - Dyspnoea [None]
  - Rash [None]
